FAERS Safety Report 5258237-8 (Version None)
Quarter: 2007Q1

REPORT INFORMATION
  Report Type: 
  Country: None (occurrence: None)
  Receive Date: 20070302
  Receipt Date: 20070216
  Transmission Date: 20070707
  Serious: Yes (Hospitalization)
  Sender: FDA-Public Use
  Company Number: S07-CAN-00890-01

PATIENT
  Sex: Female

DRUGS (1)
  1. EBIXA (MEMANTINE) [Suspect]
     Dosage: 5 MG BID PO
     Route: 048

REACTIONS (1)
  - RENAL FUNCTION TEST ABNORMAL [None]
